FAERS Safety Report 7532250-X (Version None)
Quarter: 2011Q2

REPORT INFORMATION
  Report Type: 
  Country: None (occurrence: None)
  Receive Date: 20110601
  Receipt Date: 20110520
  Transmission Date: 20111010
  Serious: Yes (Other)
  Sender: FDA-Public Use
  Company Number: LISI20110032

PATIENT
  Age: 45 Year
  Sex: Female

DRUGS (1)
  1. LISINOPRIL [Suspect]
     Indication: HYPERTENSION
     Dosage: ORAL
     Route: 048

REACTIONS (9)
  - GASTROINTESTINAL OEDEMA [None]
  - NAUSEA [None]
  - SMALL BOWEL ANGIOEDEMA [None]
  - ABDOMINAL PAIN [None]
  - VOMITING [None]
  - DIARRHOEA [None]
  - LACTIC ACIDOSIS [None]
  - LEUKOCYTOSIS [None]
  - ASCITES [None]
